FAERS Safety Report 24664972 (Version 1)
Quarter: 2024Q4

REPORT INFORMATION
  Report Type: Report from Study
  Country: KR (occurrence: KR)
  Receive Date: 20241126
  Receipt Date: 20241126
  Transmission Date: 20250115
  Serious: Yes (Other)
  Sender: SPECTRUM
  Company Number: KR-SPECTRUM PHARMACEUTICALS, INC.-KR-2024AST000359

PATIENT
  Age: 55 Year
  Sex: Female
  Weight: 57.5 kg

DRUGS (4)
  1. ROLVEDON [Suspect]
     Active Substance: EFLAPEGRASTIM-XNST
     Indication: Neutropenia
     Dosage: 13.2 MG, 24 HOURS
     Route: 058
     Dates: start: 20241015, end: 20241015
  2. PEMBROLIZUMAB [Concomitant]
     Active Substance: PEMBROLIZUMAB
     Indication: Breast cancer
     Dosage: 200 MG, QD
     Route: 065
     Dates: start: 20241014, end: 20241014
  3. DOXORUBICIN [Concomitant]
     Active Substance: DOXORUBICIN
     Indication: Breast cancer
     Dosage: 97.2 MG, QD
     Route: 065
     Dates: start: 20241014, end: 20241014
  4. CYCLOPHOSPHAMIDE [Concomitant]
     Active Substance: CYCLOPHOSPHAMIDE
     Indication: Breast cancer
     Dosage: 972 MG, QD
     Route: 065
     Dates: start: 20241014, end: 20241014

REACTIONS (1)
  - Febrile neutropenia [Recovered/Resolved]

NARRATIVE: CASE EVENT DATE: 20241021
